FAERS Safety Report 14284612 (Version 1)
Quarter: 2017Q4

REPORT INFORMATION
  Report Type: Spontaneous
  Country: FR (occurrence: FR)
  Receive Date: 20171214
  Receipt Date: 20171214
  Transmission Date: 20180321
  Serious: Yes (Other)
  Sender: FDA-Public Use
  Company Number: FR-JNJFOC-20171215130

PATIENT

DRUGS (1)
  1. INFLIXIMAB, RECOMBINANT [Suspect]
     Active Substance: INFLIXIMAB
     Indication: NEUROSARCOIDOSIS
     Route: 042

REACTIONS (3)
  - Encephalopathy [Unknown]
  - Off label use [Unknown]
  - Product use in unapproved indication [Unknown]
